FAERS Safety Report 4370704-8 (Version None)
Quarter: 2004Q2

REPORT INFORMATION
  Report Type: 
  Country: None (occurrence: None)
  Receive Date: 20040604
  Receipt Date: 20040308
  Transmission Date: 20050107
  Serious: Yes (Hospitalization)
  Sender: FDA-Public Use
  Company Number: PHRM2004FR01093

PATIENT
  Age: 69 Year
  Sex: Male
  Weight: 83 kg

DRUGS (8)
  1. COTAREG [Suspect]
     Dosage: 1 DF, QD
     Route: 048
  2. VAXIGRIP [Suspect]
     Dosage: 1 DF, ONCE/SINGLE
     Route: 058
     Dates: start: 20031104, end: 20031104
  3. SECTRAL [Suspect]
     Dosage: 1.5 DF, DAILY
     Route: 048
  4. ALLOPURINOL [Suspect]
     Dosage: 100 MG, QD
     Route: 048
     Dates: end: 20031223
  5. KARDEGIC [Suspect]
     Dosage: 160 MG, QD
     Route: 048
  6. MEDIATENSYL [Suspect]
     Dosage: 120 MG, DAILY
     Route: 048
     Dates: end: 20031223
  7. QUESTRAN [Suspect]
     Dosage: 3 DF, DAILY
     Route: 048
     Dates: end: 20031223
  8. MOPRAL [Suspect]
     Dosage: 20 MG, QD
     Route: 048

REACTIONS (9)
  - ARTHRALGIA [None]
  - HYPERTENSIVE NEPHROPATHY [None]
  - INFLAMMATION [None]
  - LOCALISED OSTEOARTHRITIS [None]
  - PROTEINURIA [None]
  - RED BLOOD CELL SEDIMENTATION RATE INCREASED [None]
  - RENAL DISORDER [None]
  - RHEUMATOID ARTHRITIS [None]
  - VASCULITIS [None]
